FAERS Safety Report 12448679 (Version 1)
Quarter: 2016Q2

REPORT INFORMATION
  Report Type: Spontaneous
  Country: US (occurrence: US)
  Receive Date: 20160608
  Receipt Date: 20160608
  Transmission Date: 20160815
  Serious: No
  Sender: FDA-Public Use
  Company Number: US-SHIRE-ALL1-2011-04048

PATIENT
  Age: 72 Year
  Sex: Male
  Weight: 65.76 kg

DRUGS (3)
  1. FOSRENOL [Suspect]
     Active Substance: LANTHANUM CARBONATE
     Indication: HYPERPHOSPHATAEMIA
  2. FOSRENOL [Suspect]
     Active Substance: LANTHANUM CARBONATE
     Indication: DIALYSIS
  3. FOSRENOL [Suspect]
     Active Substance: LANTHANUM CARBONATE
     Indication: RENAL FAILURE
     Dosage: 500 MG, OTHER (WITH EACH MEAL AND SNACK)
     Route: 048
     Dates: start: 201106, end: 2011

REACTIONS (2)
  - Tooth fracture [Not Recovered/Not Resolved]
  - Product quality issue [Recovered/Resolved]

NARRATIVE: CASE EVENT DATE: 201110
